FAERS Safety Report 7777634-X (Version None)
Quarter: 2011Q3

REPORT INFORMATION
  Report Type: 
  Country: None (occurrence: None)
  Receive Date: 20110926
  Receipt Date: 20110923
  Transmission Date: 20111222
  Serious: Yes (Death, Hospitalization)
  Sender: FDA-Public Use
  Company Number: IN-B.I. PHARMACEUTICALS,INC./RIDGEFIELD-2011-CS-00883IG

PATIENT
  Sex: Male
  Weight: 72 kg

DRUGS (1)
  1. AGGRENOX [Suspect]
     Indication: CEREBROVASCULAR ACCIDENT
     Dosage: STRENGTH: ASPRIN 25MG + ER DIPYRIDAMOLE 200MG; DAILY DOSE: OD
     Route: 048
     Dates: start: 20090323, end: 20110818

REACTIONS (4)
  - HYPERTENSION [None]
  - DEATH [None]
  - PNEUMONIA [None]
  - EPISTAXIS [None]
